FAERS Safety Report 4602738-X (Version None)
Quarter: 2005Q1

REPORT INFORMATION
  Report Type: 
  Country: None (occurrence: None)
  Receive Date: 20050307
  Receipt Date: 20050221
  Transmission Date: 20050727
  Serious: Yes (Other)
  Sender: FDA-Public Use
  Company Number: A-US2005-08932

PATIENT
  Age: 75 Year
  Sex: Male
  Weight: 100.7 kg

DRUGS (8)
  1. TRACLEER [Suspect]
     Indication: PULMONARY HYPERTENSION
     Dosage: 62.5 MG, BID, ORAL
     Route: 048
     Dates: start: 20040510, end: 20041014
  2. LASIX [Concomitant]
  3. SYNTHROID [Concomitant]
  4. COUMADIN [Concomitant]
  5. LOSARTAN (LOSARTAN) [Concomitant]
  6. METFORMIN HCL [Concomitant]
  7. AMARYL [Concomitant]
  8. ALTACE [Concomitant]

REACTIONS (5)
  - HAEMATOCRIT DECREASED [None]
  - HAEMOGLOBIN DECREASED [None]
  - OEDEMA PERIPHERAL [None]
  - PETECHIAE [None]
  - PLATELET COUNT DECREASED [None]
